FAERS Safety Report 9815578 (Version 3)
Quarter: 2015Q4

REPORT INFORMATION
  Report Type: Spontaneous
  Country: US (occurrence: US)
  Receive Date: 20140114
  Receipt Date: 20151112
  Transmission Date: 20160305
  Serious: Yes (Death, Life-Threatening, Hospitalization, Disabling, Other)
  Sender: FDA-Public Use
  Company Number: US-MERCK-1401USA003574

PATIENT
  Sex: Male
  Weight: 78.91 kg

DRUGS (3)
  1. JANUVIA [Suspect]
     Active Substance: SITAGLIPTIN PHOSPHATE
     Indication: TYPE 2 DIABETES MELLITUS
     Dosage: 100 MG, QD
     Route: 048
     Dates: start: 20080820, end: 20111028
  2. JANUMET [Suspect]
     Active Substance: METFORMIN HYDROCHLORIDE\SITAGLIPTIN PHOSPHATE
     Indication: TYPE 2 DIABETES MELLITUS
     Dosage: 50/500 MG, BID
     Dates: start: 20111028, end: 20120204
  3. JANUVIA [Suspect]
     Active Substance: SITAGLIPTIN PHOSPHATE
     Dosage: 50 MG, QD
     Route: 048
     Dates: end: 20111028

REACTIONS (24)
  - Peroneal nerve palsy [Unknown]
  - Intervertebral disc degeneration [Unknown]
  - Aggression [Unknown]
  - Pyrexia [Unknown]
  - Myocardial infarction [Fatal]
  - Benign neoplasm of adrenal gland [Unknown]
  - Bile duct cancer [Unknown]
  - Diabetes mellitus inadequate control [Unknown]
  - Hyperlipidaemia [Unknown]
  - Libido decreased [Unknown]
  - Pancreatic carcinoma metastatic [Fatal]
  - Metastatic neoplasm [Unknown]
  - Depression [Unknown]
  - Erectile dysfunction [Unknown]
  - Sciatica [Unknown]
  - Gastrointestinal disorder [Unknown]
  - Pancreatic cyst [Unknown]
  - Post procedural haematoma [Unknown]
  - Gastrooesophageal reflux disease [Unknown]
  - Insomnia [Unknown]
  - Chest pain [Unknown]
  - Metastases to liver [Unknown]
  - Anaemia [Unknown]
  - Lumbar radiculopathy [Unknown]

NARRATIVE: CASE EVENT DATE: 20110915
